FAERS Safety Report 5071140-1 (Version None)
Quarter: 2006Q3

REPORT INFORMATION
  Report Type: 
  Country: None (occurrence: None)
  Receive Date: 20060804
  Receipt Date: 20060301
  Transmission Date: 20061208
  Serious: No
  Sender: FDA-Public Use
  Company Number: US-GLAXOSMITHKLINE-A0595647A

PATIENT
  Age: 38 Year
  Sex: Female

DRUGS (6)
  1. NICORETTE (MINT) [Suspect]
     Dates: start: 20060226, end: 20060227
  2. COMMIT [Suspect]
     Dates: start: 20060228, end: 20060228
  3. NICODERM CQ [Suspect]
  4. NICODERM CQ [Suspect]
  5. NICODERM CQ [Suspect]
  6. ZYBAN [Suspect]

REACTIONS (15)
  - ASTHENIA [None]
  - DISTURBANCE IN ATTENTION [None]
  - DRUG WITHDRAWAL SYNDROME [None]
  - EYE DISORDER [None]
  - FATIGUE [None]
  - FEELING ABNORMAL [None]
  - FEELING COLD [None]
  - HEADACHE [None]
  - HYPERHIDROSIS [None]
  - INSOMNIA [None]
  - IRRITABILITY [None]
  - MOOD ALTERED [None]
  - NICOTINE DEPENDENCE [None]
  - OVERDOSE [None]
  - TENSION [None]
